FAERS Safety Report 19470692 (Version 2)
Quarter: 2022Q1

REPORT INFORMATION
  Report Type: Spontaneous
  Country: US (occurrence: US)
  Receive Date: 20210628
  Receipt Date: 20220322
  Transmission Date: 20220423
  Serious: Yes (Death, Other)
  Sender: FDA-Public Use
  Company Number: US-MYLANLABS-2021M1037473

PATIENT
  Age: 62 Year
  Sex: Male
  Weight: 113.3 kg

DRUGS (1)
  1. VALSARTAN [Suspect]
     Active Substance: VALSARTAN
     Indication: Hypertension
     Dosage: UNK MILLIGRAM
     Dates: start: 20160314, end: 20160608

REACTIONS (1)
  - Colorectal cancer stage IV [Fatal]

NARRATIVE: CASE EVENT DATE: 20180307
